FAERS Safety Report 9487380 (Version 2)
Quarter: 2013Q3

REPORT INFORMATION
  Report Type: Spontaneous
  Country: US (occurrence: US)
  Receive Date: 20130829
  Receipt Date: 20130829
  Transmission Date: 20140515
  Serious: Yes (Death, Other)
  Sender: FDA-Public Use
  Company Number: US-AMGEN-KDL352112

PATIENT
  Sex: Female

DRUGS (3)
  1. PROCRIT [Suspect]
     Indication: ANAEMIA
     Dosage: UNK UNK, UNK
     Route: 065
  2. VENLAFAXINE HCL [Concomitant]
  3. CELEXA [Concomitant]

REACTIONS (9)
  - Death [Fatal]
  - Jaundice [Unknown]
  - Abdominal pain [Unknown]
  - Cholelithiasis [Unknown]
  - Vomiting [Unknown]
  - Drug abuse [Unknown]
  - Lethargy [Unknown]
  - Somnolence [Unknown]
  - Nausea [Unknown]
